FAERS Safety Report 6127241-X (Version None)
Quarter: 2009Q1

REPORT INFORMATION
  Report Type: 
  Country: None (occurrence: None)
  Receive Date: 20090317
  Receipt Date: 20081008
  Transmission Date: 20090719
  Serious: Yes (Other)
  Sender: FDA-Public Use
  Company Number: ACTA001108

PATIENT
  Age: 29 Year
  Sex: Male

DRUGS (1)
  1. NEOTIGASON (ACITRETIN) [Suspect]
     Indication: PSORIASIS
     Dosage: 25MG PER DAY
     Route: 048

REACTIONS (1)
  - HAEMORRHAGE URINARY TRACT [None]
